FAERS Safety Report 15407533 (Version 1)
Quarter: 2018Q3

REPORT INFORMATION
  Report Type: Spontaneous
  Country: US (occurrence: US)
  Receive Date: 20180920
  Receipt Date: 20180920
  Transmission Date: 20181010
  Serious: No
  Sender: FDA-Public Use
  Company Number: US-AMARIN PHARMA, INC.-2018AMR000093

PATIENT
  Sex: Female
  Weight: 65.83 kg

DRUGS (2)
  1. VASCEPA [Suspect]
     Active Substance: ICOSAPENT ETHYL
     Route: 065
  2. VASCEPA [Suspect]
     Active Substance: ICOSAPENT ETHYL
     Indication: BLOOD TRIGLYCERIDES INCREASED
     Route: 065

REACTIONS (6)
  - Product adhesion issue [Unknown]
  - Product colour issue [Unknown]
  - Underdose [Unknown]
  - Overdose [Unknown]
  - Off label use [Unknown]
  - Product odour abnormal [Unknown]
